FAERS Safety Report 16110911 (Version 1)
Quarter: 2019Q1

REPORT INFORMATION
  Report Type: Spontaneous
  Country: US (occurrence: US)
  Receive Date: 20190325
  Receipt Date: 20190325
  Transmission Date: 20190418
  Serious: No
  Sender: FDA-Public Use
  Company Number: US-JNJFOC-20190302861

PATIENT
  Sex: Male
  Weight: 88.45 kg

DRUGS (3)
  1. FENTANYL. [Suspect]
     Active Substance: FENTANYL
     Indication: PAIN
     Dosage: ONE PATCH FOR 72 HOURS CONTINUOUS RELEASE
     Route: 062
  2. MORPHINE [Suspect]
     Active Substance: MORPHINE
     Indication: PAIN
     Route: 048
  3. FENTANYL. [Suspect]
     Active Substance: FENTANYL
     Indication: INFLAMMATION
     Dosage: ONE PATCH FOR 72 HOURS CONTINUOUS RELEASE
     Route: 062

REACTIONS (1)
  - Impaired work ability [Unknown]
